FAERS Safety Report 11401171 (Version 1)
Quarter: 2015Q3

REPORT INFORMATION
  Report Type: Spontaneous
  Country: US (occurrence: US)
  Receive Date: 20150820
  Receipt Date: 20150820
  Transmission Date: 20151125
  Serious: No
  Sender: FDA-Public Use
  Company Number: US-GLAXOSMITHKLINE-US2015GSK098900

PATIENT
  Sex: Male

DRUGS (1)
  1. PROMACTA [Suspect]
     Active Substance: ELTROMBOPAG OLAMINE
     Dosage: 50 MG, QD
     Dates: start: 20150326

REACTIONS (4)
  - Mood swings [Unknown]
  - Drug dose omission [Unknown]
  - Pruritus [Unknown]
  - Drug administered to patient of inappropriate age [Unknown]
